FAERS Safety Report 8304425-3 (Version None)
Quarter: 2012Q2

REPORT INFORMATION
  Report Type: 
  Country: None (occurrence: None)
  Receive Date: 20120423
  Receipt Date: 20110801
  Transmission Date: 20120825
  Serious: No
  Sender: FDA-Public Use
  Company Number: US-COVIDIEN/TYCO HEALTHCARE/MALLINCKRODT-T201101263

PATIENT
  Sex: Male
  Weight: 77.098 kg

DRUGS (5)
  1. METHYLIN [Suspect]
     Indication: ATTENTION DEFICIT/HYPERACTIVITY DISORDER
     Dosage: 60 MG, QD
     Route: 048
     Dates: start: 20100610
  2. NORCO [Concomitant]
     Indication: BREAKTHROUGH PAIN
  3. OXYCODONE HCL EXTENDED-RELEASE [Concomitant]
     Indication: PAIN
     Dosage: PRN
  4. LYRICA [Concomitant]
     Indication: HYPOAESTHESIA
  5. METHYLIN [Suspect]
     Dosage: 20 MG, TID
     Route: 048
     Dates: start: 20110721

REACTIONS (2)
  - DRUG EFFECT DECREASED [None]
  - PAIN [None]
